FAERS Safety Report 4613335-4 (Version None)
Quarter: 2005Q1

REPORT INFORMATION
  Report Type: 
  Country: None (occurrence: None)
  Receive Date: 20050316
  Receipt Date: 20050217
  Transmission Date: 20050727
  Serious: Yes (Other)
  Sender: FDA-Public Use
  Company Number: 2005027606

PATIENT
  Age: 46 Year
  Sex: Male

DRUGS (6)
  1. CELECOXIB (CELECOXIB) [Suspect]
     Indication: RHEUMATOID ARTHRITIS
     Dosage: 400 MG (200 MG, 1 IN 1 D),ORAL
     Route: 048
     Dates: start: 20030327
  2. METHOTREXATE [Suspect]
     Indication: RHEUMATOID ARTHRITIS
     Dosage: (15 MG, ONCE WEEKLY), ORAL
     Route: 048
     Dates: start: 20021111
  3. PREDNISONE [Concomitant]
  4. OMEPRAZOLE [Concomitant]
  5. FOLIC ACID [Concomitant]
  6. ALENDRONATE SODIUM [Concomitant]

REACTIONS (1)
  - CARDIAC DISORDER [None]
